FAERS Safety Report 16167162 (Version 1)
Quarter: 2019Q2

REPORT INFORMATION
  Report Type: Spontaneous
  Country: IT (occurrence: IT)
  Receive Date: 20190408
  Receipt Date: 20190408
  Transmission Date: 20190711
  Serious: Yes (Other)
  Sender: FDA-Public Use
  Company Number: IT-TEVA-2019-IT-1034127

PATIENT
  Sex: Female

DRUGS (1)
  1. COPAXONE [Suspect]
     Active Substance: GLATIRAMER ACETATE
     Route: 065

REACTIONS (7)
  - Walking aid user [Unknown]
  - Multiple sclerosis [Unknown]
  - Nervousness [Unknown]
  - Discomfort [Unknown]
  - Fatigue [Unknown]
  - Hypersensitivity [Unknown]
  - Motor dysfunction [Unknown]
